FAERS Safety Report 13689962 (Version 1)
Quarter: 2017Q2

REPORT INFORMATION
  Report Type: Spontaneous
  Country: US (occurrence: US)
  Receive Date: 20170626
  Receipt Date: 20170626
  Transmission Date: 20170830
  Serious: Yes (Other)
  Sender: FDA-Public Use
  Company Number: PHEH2017US018079

PATIENT
  Sex: Male

DRUGS (2)
  1. ALKA-SELTZER [Concomitant]
     Active Substance: ANHYDROUS CITRIC ACID\ASPIRIN\SODIUM BICARBONATE
     Indication: PRODUCT USED FOR UNKNOWN INDICATION
     Route: 065
  2. RITALIN [Suspect]
     Active Substance: METHYLPHENIDATE HYDROCHLORIDE
     Indication: PRODUCT USED FOR UNKNOWN INDICATION
     Route: 065

REACTIONS (10)
  - Feeling abnormal [Unknown]
  - Headache [Unknown]
  - Insomnia [Unknown]
  - Eating disorder [Unknown]
  - Fatigue [Unknown]
  - Choking [Unknown]
  - Eyelid disorder [Unknown]
  - Paraesthesia [Unknown]
  - Abdominal pain upper [Unknown]
  - Agitation [Unknown]
